FAERS Safety Report 15417804 (Version 1)
Quarter: 2018Q3

REPORT INFORMATION
  Report Type: Spontaneous
  Country: US (occurrence: US)
  Receive Date: 20180924
  Receipt Date: 20180924
  Transmission Date: 20181010
  Serious: Yes (Hospitalization, Other)
  Sender: FDA-Public Use
  Company Number: US-OTSUKA-2018_015410

PATIENT
  Sex: Female

DRUGS (6)
  1. LITHIUM. [Concomitant]
     Active Substance: LITHIUM
     Indication: PRODUCT USED FOR UNKNOWN INDICATION
     Dosage: 50 MG ?3000 MG
     Route: 065
  2. KLONOPIN [Concomitant]
     Active Substance: CLONAZEPAM
     Indication: PRODUCT USED FOR UNKNOWN INDICATION
     Dosage: UNK
     Route: 065
  3. LEXAPRO [Concomitant]
     Active Substance: ESCITALOPRAM OXALATE
     Indication: DEPRESSION
     Dosage: 2.5 MG? 40 MG
     Route: 065
  4. TRAZODONE [Concomitant]
     Active Substance: TRAZODONE HYDROCHLORIDE
     Indication: PRODUCT USED FOR UNKNOWN INDICATION
     Dosage: 25 MG ?400MG
     Route: 065
  5. ABILIFY [Suspect]
     Active Substance: ARIPIPRAZOLE
     Indication: MAJOR DEPRESSION
     Dosage: (2 MG? 60 MG) QD
     Route: 065
     Dates: start: 2005, end: 2018
  6. XANAX [Concomitant]
     Active Substance: ALPRAZOLAM
     Indication: PRODUCT USED FOR UNKNOWN INDICATION
     Dosage: 0.25 MG ?10 MG
     Route: 065

REACTIONS (50)
  - Contusion [Unknown]
  - Hypoacusis [Unknown]
  - Blood glucose decreased [Unknown]
  - Hyperlipidaemia [Unknown]
  - Blood glucose increased [Unknown]
  - Syncope [Unknown]
  - Weight abnormal [Unknown]
  - Neuropathy peripheral [Unknown]
  - Sleep apnoea syndrome [Unknown]
  - Muscular weakness [Unknown]
  - Headache [Unknown]
  - Injury [Unknown]
  - Myocardial infarction [Unknown]
  - Tooth disorder [Unknown]
  - Ataxia [Unknown]
  - Obesity [Unknown]
  - Judgement impaired [Unknown]
  - Pain [Unknown]
  - Glaucoma [Unknown]
  - Eye disorder [Unknown]
  - Chronic obstructive pulmonary disease [Unknown]
  - Hearing aid user [Unknown]
  - Weight decreased [Unknown]
  - Metastases to lung [Unknown]
  - Bradycardia [Unknown]
  - Pancreatitis [Unknown]
  - Ulcer [Unknown]
  - Confusional state [Unknown]
  - Sleep disorder [Unknown]
  - Abdominal pain upper [Unknown]
  - Dizziness [Unknown]
  - Insomnia [Unknown]
  - Asthma [Unknown]
  - Wheelchair user [Unknown]
  - Amnesia [Unknown]
  - Colon cancer [Unknown]
  - Suicidal ideation [Unknown]
  - Bladder disorder [Unknown]
  - Cardiac disorder [Unknown]
  - Hernia [Unknown]
  - Disorientation [Unknown]
  - Memory impairment [Unknown]
  - Anxiety [Unknown]
  - Diarrhoea [Unknown]
  - Gambling disorder [Not Recovered/Not Resolved]
  - Sepsis [Unknown]
  - Dysphonia [Unknown]
  - Tremor [Unknown]
  - Hypertension [Unknown]
  - Economic problem [Unknown]

NARRATIVE: CASE EVENT DATE: 2009
